FAERS Safety Report 6470079-4 (Version None)
Quarter: 2009Q4

REPORT INFORMATION
  Report Type: 
  Country: None (occurrence: None)
  Receive Date: 20091203
  Receipt Date: 20091125
  Transmission Date: 20100525
  Serious: Yes (Other)
  Sender: FDA-Public Use
  Company Number: US-JNJFOC-20091108212

PATIENT
  Age: 17 Year
  Sex: Female

DRUGS (2)
  1. MONISTAT 7 [Suspect]
     Route: 061
     Dates: start: 20090101, end: 20090101
  2. MONISTAT 7 [Suspect]
     Indication: FUNGAL INFECTION
     Route: 061
     Dates: start: 20090101, end: 20090101

REACTIONS (2)
  - INCORRECT ROUTE OF DRUG ADMINISTRATION [None]
  - LOSS OF CONSCIOUSNESS [None]
